FAERS Safety Report 10708873 (Version 1)
Quarter: 2015Q1

REPORT INFORMATION
  Report Type: Spontaneous
  Country: JP (occurrence: JP)
  Receive Date: 20150113
  Receipt Date: 20150113
  Transmission Date: 20150721
  Serious: Yes (Other)
  Sender: FDA-Public Use
  Company Number: JP-ROCHE-1520702

PATIENT
  Age: 75 Year
  Sex: Female

DRUGS (10)
  1. ROZEREM [Concomitant]
     Active Substance: RAMELTEON
     Route: 048
  2. DONEPEZIL HYDROCHLORIDE. [Concomitant]
     Active Substance: DONEPEZIL HYDROCHLORIDE
     Route: 048
  3. RISEDRONATE NATRIUM [Concomitant]
     Route: 048
  4. AMLODIPINE [Concomitant]
     Active Substance: AMLODIPINE BESYLATE
     Route: 048
  5. DEPAS [Concomitant]
     Active Substance: ETIZOLAM
     Route: 048
  6. TAMIFLU [Suspect]
     Active Substance: OSELTAMIVIR PHOSPHATE
     Indication: ANTIVIRAL PROPHYLAXIS
     Dosage: DOSAGE IS UNCERTAIN
     Route: 048
     Dates: start: 20150106
  7. FUROSEMIDE. [Concomitant]
     Active Substance: FUROSEMIDE
     Route: 048
  8. TAIPROTON [Concomitant]
     Active Substance: LANSOPRAZOLE
     Route: 048
  9. BIO-THREE [Concomitant]
     Active Substance: HERBALS
     Route: 048
  10. TOUGHMAC E [Concomitant]
     Active Substance: AMYLASE\LIPASE\PROTEASE
     Route: 048

REACTIONS (1)
  - Shock [Unknown]

NARRATIVE: CASE EVENT DATE: 20150107
